FAERS Safety Report 4897393-8 (Version None)
Quarter: 2006Q1

REPORT INFORMATION
  Report Type: 
  Country: None (occurrence: None)
  Receive Date: 20060130
  Receipt Date: 20060130
  Transmission Date: 20060701
  Serious: Yes (Other)
  Sender: FDA-Public Use
  Company Number: None

PATIENT
  Age: 63 Year
  Sex: Male
  Weight: 78 kg

DRUGS (3)
  1. PALIFERMIN    6.25 MG PER VIAL     AMGEN [Suspect]
     Indication: PROPHYLAXIS
     Dosage: 4.7 MG   DAILY   IV
     Route: 042
     Dates: start: 20050904, end: 20050906
  2. PALIFERMIN    6.25 MG PER VIAL     AMGEN [Suspect]
     Indication: STOMATITIS
     Dosage: 4.7 MG   DAILY   IV
     Route: 042
     Dates: start: 20050904, end: 20050906
  3. HEPARIN [Concomitant]

REACTIONS (4)
  - ANGIONEUROTIC OEDEMA [None]
  - ERYTHEMA [None]
  - OEDEMA PERIPHERAL [None]
  - SKIN DISCOLOURATION [None]
